FAERS Safety Report 7603933-8 (Version None)
Quarter: 2011Q3

REPORT INFORMATION
  Report Type: 
  Country: None (occurrence: None)
  Receive Date: 20110712
  Receipt Date: 20110701
  Transmission Date: 20111222
  Serious: Yes (Other)
  Sender: FDA-Public Use
  Company Number: DE-ROCHE-778245

PATIENT
  Sex: Female

DRUGS (2)
  1. XELODA [Concomitant]
  2. AVASTIN [Suspect]
     Route: 042

REACTIONS (1)
  - CONVULSION [None]
